FAERS Safety Report 9914268 (Version 2)
Quarter: 2014Q4

REPORT INFORMATION
  Report Type: Spontaneous
  Country: US (occurrence: US)
  Receive Date: 20140220
  Receipt Date: 20141211
  Transmission Date: 20150529
  Serious: Yes (Other)
  Sender: FDA-Public Use
  Company Number: US-AMGEN-USASP2014010917

PATIENT
  Age: 74 Year
  Sex: Female
  Weight: 52.15 kg

DRUGS (2)
  1. PROLIA [Suspect]
     Active Substance: DENOSUMAB
     Indication: OSTEOPOROSIS POSTMENOPAUSAL
     Dosage: UNK
     Route: 065
     Dates: start: 20131125
  2. ALGAE NOS [Concomitant]
     Dosage: UNK
     Route: 048

REACTIONS (5)
  - Intervertebral disc protrusion [Unknown]
  - Stress [Unknown]
  - Eructation [Unknown]
  - Gastric disorder [Recovering/Resolving]
  - Flatulence [Unknown]

NARRATIVE: CASE EVENT DATE: 201311
